FAERS Safety Report 5336264-X (Version None)
Quarter: 2007Q2

REPORT INFORMATION
  Report Type: 
  Country: None (occurrence: None)
  Receive Date: 20070315
  Receipt Date: 20070202
  Transmission Date: 20071010
  Serious: No
  Sender: FDA-Public Use
  Company Number: BDI-009116

PATIENT
  Age: 43 Year
  Sex: Female

DRUGS (1)
  1. MULTIHANCE [Suspect]
     Indication: NUCLEAR MAGNETIC RESONANCE IMAGING
     Dosage: 17 ML ONCE IV
     Route: 042
     Dates: start: 20070130, end: 20070130

REACTIONS (2)
  - NUCLEAR MAGNETIC RESONANCE IMAGING ABDOMINAL [None]
  - VOMITING [None]
